FAERS Safety Report 13076355 (Version 3)
Quarter: 2017Q1

REPORT INFORMATION
  Report Type: Report from Study
  Country: AU (occurrence: AU)
  Receive Date: 20161230
  Receipt Date: 20170111
  Transmission Date: 20170428
  Serious: Yes (Other)
  Sender: FDA-Public Use
  Company Number: AU-JNJFOC-20161223019

PATIENT
  Age: 61 Year
  Sex: Male

DRUGS (1)
  1. STELARA [Suspect]
     Active Substance: USTEKINUMAB
     Indication: PSORIASIS
     Route: 058
     Dates: start: 20160704

REACTIONS (3)
  - Lower respiratory tract infection [Unknown]
  - Influenza [Unknown]
  - Psoriasis [Unknown]

NARRATIVE: CASE EVENT DATE: 20161209
